FAERS Safety Report 23150411 (Version 3)
Quarter: 2023Q4

REPORT INFORMATION
  Report Type: Spontaneous
  Country: US (occurrence: US)
  Receive Date: 20231106
  Receipt Date: 20231228
  Transmission Date: 20240110
  Serious: No
  Sender: FDA-Public Use
  Company Number: US-PFIZER INC-202300354013

PATIENT
  Age: 89 Year
  Sex: Female
  Weight: 50.8 kg

DRUGS (2)
  1. PREMARIN [Suspect]
     Active Substance: ESTROGENS, CONJUGATED
     Indication: Neoplasm malignant
     Dosage: UNK, 2X/WEEK
  2. OMEPRAZOLE [Concomitant]
     Active Substance: OMEPRAZOLE
     Indication: Abdominal discomfort
     Dosage: 20 MG, 1X/DAY
     Route: 048

REACTIONS (2)
  - Hypoacusis [Unknown]
  - Off label use [Unknown]
